FAERS Safety Report 8836461 (Version 1)
Quarter: 2012Q4

REPORT INFORMATION
  Report Type: 
  Country: US (occurrence: US)
  Receive Date: 20121011
  Receipt Date: 20121011
  Transmission Date: 20130627
  Serious: Yes (Other)
  Sender: FDA-Public Use
  Company Number: US-ASTRAZENECA-2012SE76313

PATIENT
  Age: 46 Year
  Sex: Female

DRUGS (1)
  1. NEXIUM [Suspect]
     Route: 048

REACTIONS (6)
  - Cerebrovascular accident [Unknown]
  - Visual impairment [Unknown]
  - Tooth abscess [Unknown]
  - Mental disorder [Unknown]
  - Mental impairment [Unknown]
  - Malaise [Unknown]
